FAERS Safety Report 22060134 (Version 1)
Quarter: 2023Q1

REPORT INFORMATION
  Report Type: Report from Study
  Country: US (occurrence: US)
  Receive Date: 20230303
  Receipt Date: 20230303
  Transmission Date: 20230418
  Serious: Yes (Other)
  Sender: FDA-Public Use
  Company Number: US-ABBVIE-4287669

PATIENT
  Age: 54 Year
  Sex: Male

DRUGS (2)
  1. IMBRUVICA [Suspect]
     Active Substance: IBRUTINIB
     Indication: Chronic lymphocytic leukaemia
     Route: 048
  2. IMBRUVICA [Suspect]
     Active Substance: IBRUTINIB
     Indication: Chronic lymphocytic leukaemia
     Route: 048

REACTIONS (9)
  - Oral infection [Recovering/Resolving]
  - Influenza [Recovering/Resolving]
  - Hyperaesthesia teeth [Recovering/Resolving]
  - Head discomfort [Recovering/Resolving]
  - Influenza [Recovered/Resolved]
  - Chest discomfort [Unknown]
  - Dizziness [Recovering/Resolving]
  - Cough [Recovering/Resolving]
  - Sinus congestion [Recovering/Resolving]

NARRATIVE: CASE EVENT DATE: 20221129
